FAERS Safety Report 17901033 (Version 5)
Quarter: 2020Q4

REPORT INFORMATION
  Report Type: Spontaneous
  Country: US (occurrence: US)
  Receive Date: 20200616
  Receipt Date: 20201008
  Transmission Date: 20210113
  Serious: Yes (Hospitalization)
  Sender: FDA-Public Use
  Company Number: US-VERTEX PHARMACEUTICALS-2020-012761

PATIENT
  Age: 56 Year
  Sex: Female

DRUGS (25)
  1. MIRALAX [Concomitant]
     Active Substance: POLYETHYLENE GLYCOL 3350
  2. VITAMIN D3 [Concomitant]
     Active Substance: CHOLECALCIFEROL
     Dosage: 5000 IU INTERNATIONAL UNIT(S)
  3. LEVOFLOXACIN. [Concomitant]
     Active Substance: LEVOFLOXACIN
  4. CALCIUM CITRATE + D3 [Concomitant]
  5. SODIUM CHLORIDE. [Concomitant]
     Active Substance: SODIUM CHLORIDE
  6. ALPRAZOLAM. [Concomitant]
     Active Substance: ALPRAZOLAM
  7. FLONASE [Concomitant]
     Active Substance: FLUTICASONE PROPIONATE
  8. SERTRALINE [Concomitant]
     Active Substance: SERTRALINE HYDROCHLORIDE
  9. KALYDECO [Suspect]
     Active Substance: IVACAFTOR
     Indication: CYSTIC FIBROSIS
     Dosage: 150 MG, BID
     Route: 048
     Dates: start: 20150110
  10. LEVALBUTEROL [LEVOSALBUTAMOL] [Concomitant]
     Active Substance: LEVALBUTEROL
  11. PANTOPRAZOLE [Concomitant]
     Active Substance: PANTOPRAZOLE
  12. PROMETHAZINE [Concomitant]
     Active Substance: PROMETHAZINE HYDROCHLORIDE
  13. CAYSTON [Concomitant]
     Active Substance: AZTREONAM
  14. CALCIUM + VITAMIN D3 [Concomitant]
     Active Substance: CALCIUM\CHOLECALCIFEROL
  15. NYSTATIN. [Concomitant]
     Active Substance: NYSTATIN
  16. FAMOTIDINE. [Concomitant]
     Active Substance: FAMOTIDINE
  17. ADVAIR HFA [Concomitant]
     Active Substance: FLUTICASONE PROPIONATE\SALMETEROL XINAFOATE
  18. GUAIFENESIN. [Concomitant]
     Active Substance: GUAIFENESIN
  19. ALTERRA [Concomitant]
  20. SEROQUEL [Concomitant]
     Active Substance: QUETIAPINE FUMARATE
  21. METAXALONE. [Concomitant]
     Active Substance: METAXALONE
  22. TOPIRAMATE. [Concomitant]
     Active Substance: TOPIRAMATE
  23. BETHKIS [Suspect]
     Active Substance: TOBRAMYCIN
     Indication: CYSTIC FIBROSIS
     Dosage: 300MG/4ML, ORAL NEBULIZED BID
     Route: 048
     Dates: start: 20200507
  24. CYANOCOBALAMIN. [Concomitant]
     Active Substance: CYANOCOBALAMIN
  25. MELATONIN [Concomitant]
     Active Substance: MELATONIN

REACTIONS (3)
  - Pneumonia fungal [Unknown]
  - Bronchopulmonary aspergillosis [Not Recovered/Not Resolved]
  - Thermal burn [Not Recovered/Not Resolved]

NARRATIVE: CASE EVENT DATE: 202005
